FAERS Safety Report 4867165-9 (Version None)
Quarter: 2005Q4

REPORT INFORMATION
  Report Type: 
  Country: None (occurrence: None)
  Receive Date: 20051222
  Receipt Date: 20051214
  Transmission Date: 20060501
  Serious: Yes (Other)
  Sender: FDA-Public Use
  Company Number: 2005169552

PATIENT
  Age: 83 Year
  Sex: Female
  Weight: 47.6277 kg

DRUGS (5)
  1. NORVASC [Suspect]
     Indication: HYPERTENSION
  2. PLAVIX [Suspect]
     Indication: CEREBROVASCULAR ACCIDENT
     Dates: start: 20040101
  3. MULTIVITAMIN [Concomitant]
  4. VITAMIN C (VITAMIN C) [Concomitant]
  5. VITAMIN E [Concomitant]

REACTIONS (2)
  - CEREBROVASCULAR ACCIDENT [None]
  - STOMATITIS [None]
